FAERS Safety Report 7986732-7 (Version None)
Quarter: 2011Q4

REPORT INFORMATION
  Report Type: 
  Country: None (occurrence: None)
  Receive Date: 20111216
  Receipt Date: 20110217
  Transmission Date: 20120403
  Serious: No
  Sender: FDA-Public Use
  Company Number: US-BRISTOL-MYERS SQUIBB COMPANY-15557267

PATIENT
  Age: 66 Year
  Sex: Male
  Weight: 73 kg

DRUGS (4)
  1. ABILIFY [Suspect]
  2. HYDROCHLOROTHIAZIDE [Concomitant]
  3. LIPITOR [Concomitant]
  4. ALPRAZOLAM [Concomitant]

REACTIONS (2)
  - HEADACHE [None]
  - VISION BLURRED [None]
